FAERS Safety Report 16096553 (Version 1)
Quarter: 2019Q1

REPORT INFORMATION
  Report Type: Spontaneous
  Country: IT (occurrence: IT)
  Receive Date: 20190320
  Receipt Date: 20190320
  Transmission Date: 20190418
  Serious: Yes (Hospitalization, Other)
  Sender: FDA-Public Use
  Company Number: IT-ASTRAZENECA-2019SE44671

PATIENT
  Age: 43 Year
  Sex: Male

DRUGS (4)
  1. TIROFIBAN [Concomitant]
     Active Substance: TIROFIBAN
  2. TICAGRELOR. [Suspect]
     Active Substance: TICAGRELOR
     Route: 048
  3. ASPIRIN. [Suspect]
     Active Substance: ASPIRIN
     Route: 065
  4. HEPARIN [Concomitant]
     Active Substance: HEPARIN SODIUM

REACTIONS (2)
  - Ileus paralytic [Unknown]
  - Pharyngeal haemorrhage [Unknown]
